FAERS Safety Report 11340548 (Version 1)
Quarter: 2015Q3

REPORT INFORMATION
  Report Type: Spontaneous
  Country: US (occurrence: None)
  Receive Date: 20150629
  Receipt Date: 20150629
  Transmission Date: 20151125
  Serious: No
  Sender: FDA-Public Use
  Company Number: A-US2014-109691

PATIENT
  Age: 69 Year
  Sex: Female

DRUGS (12)
  1. ALDACTONE (POTASSIUM CANRENOATE) [Concomitant]
  2. SYNTHROID [Concomitant]
     Active Substance: LEVOTHYROXINE SODIUM
  3. POTASSIUM [Concomitant]
     Active Substance: POTASSIUM
  4. WARFARIN (WARFARIN SODIUM) [Concomitant]
     Active Substance: WARFARIN
  5. ULORIC [Concomitant]
     Active Substance: FEBUXOSTAT
  6. COLACE [Concomitant]
     Active Substance: DOCUSATE SODIUM
  7. DORZOLAMIDE (DORZOLAMIDE HYDROCHLORIDE) [Concomitant]
  8. AMIODARONE (AMIODARONE HYDROCHLORIDE) [Concomitant]
  9. LIDODERM [Concomitant]
     Active Substance: LIDOCAINE
  10. FUROSEMIDE (FUROSEMIDE SODIUM) [Concomitant]
  11. OPSUMIT [Suspect]
     Active Substance: MACITENTAN
     Indication: PULMONARY ARTERIAL HYPERTENSION
     Route: 048
     Dates: start: 20141113
  12. ESTRACE (ESTRADIOL) [Concomitant]

REACTIONS (4)
  - Drug ineffective [None]
  - Dyspnoea [None]
  - International normalised ratio fluctuation [None]
  - Oxygen saturation decreased [None]

NARRATIVE: CASE EVENT DATE: 20141208
